FAERS Safety Report 8493960-3 (Version None)
Quarter: 2012Q3

REPORT INFORMATION
  Report Type: 
  Country: None (occurrence: None)
  Receive Date: 20120709
  Receipt Date: 20120702
  Transmission Date: 20120928
  Serious: Yes (Other)
  Sender: FDA-Public Use
  Company Number: US-AMGEN-USASP2012040745

PATIENT
  Age: 70 Year
  Sex: Male

DRUGS (1)
  1. ENBREL [Suspect]
     Indication: PSORIATIC ARTHROPATHY
     Dosage: 50 MG, QWK
     Dates: start: 20120416, end: 20120629

REACTIONS (10)
  - PLEURAL EFFUSION [None]
  - PNEUMOTHORAX [None]
  - DYSPNOEA [None]
  - HEADACHE [None]
  - CHEST PAIN [None]
  - ABDOMINAL PAIN UPPER [None]
  - PHOTOPHOBIA [None]
  - PSORIASIS [None]
  - SINUS CONGESTION [None]
  - DRUG INEFFECTIVE [None]
